FAERS Safety Report 15007699 (Version 2)
Quarter: 2018Q3

REPORT INFORMATION
  Report Type: Spontaneous
  Country: US (occurrence: US)
  Receive Date: 20180613
  Receipt Date: 20180705
  Transmission Date: 20181010
  Serious: Yes (Hospitalization)
  Sender: FDA-Public Use
  Company Number: US-ASTRAZENECA-2018SE74341

PATIENT
  Age: 23206 Day
  Sex: Male
  Weight: 106.6 kg

DRUGS (3)
  1. BYETTA [Suspect]
     Active Substance: EXENATIDE
     Indication: TYPE 2 DIABETES MELLITUS
     Dosage: UNKNOWN, TWO TIMES A DAY.
     Route: 058
     Dates: start: 201702, end: 201805
  2. BYDUREON BCISE [Suspect]
     Active Substance: EXENATIDE
     Indication: TYPE 2 DIABETES MELLITUS
     Route: 058
     Dates: start: 20180516
  3. HUMALOG [Concomitant]
     Active Substance: INSULIN LISPRO
     Indication: TYPE 2 DIABETES MELLITUS
     Dosage: THREE TIMES DAILY WITH MEALS, 15 UNITS IN THE A.M., 20 UNITS WITH THE AFTERNOON MEAL, AND 20 UNIT...
     Route: 058
     Dates: start: 201802

REACTIONS (6)
  - Rotator cuff syndrome [Recovering/Resolving]
  - Tendon rupture [Recovered/Resolved]
  - Device leakage [Unknown]
  - Underdose [Unknown]
  - Intentional product misuse [Unknown]
  - Device malfunction [Unknown]

NARRATIVE: CASE EVENT DATE: 20180306
